FAERS Safety Report 12642447 (Version 4)
Quarter: 2018Q1

REPORT INFORMATION
  Report Type: Spontaneous
  Country: SE (occurrence: SE)
  Receive Date: 20160810
  Receipt Date: 20180208
  Transmission Date: 20180508
  Serious: Yes (Disabling, Other)
  Sender: FDA-Public Use
  Company Number: ALCN2016SE005363

PATIENT
  Age: 77 Year
  Sex: Male
  Weight: 85 kg

DRUGS (3)
  1. BIMATOPROST. [Concomitant]
     Active Substance: BIMATOPROST
     Indication: INTRAOCULAR PRESSURE INCREASED
     Dosage: 1 GTT, QD
     Route: 047
  2. AZOPT [Suspect]
     Active Substance: BRINZOLAMIDE
     Indication: INTRAOCULAR PRESSURE INCREASED
     Dosage: 1 GTT, BID
     Route: 047
     Dates: start: 20090907
  3. AZOPT [Suspect]
     Active Substance: BRINZOLAMIDE
     Dosage: 1 GTT, TID
     Route: 047
     Dates: start: 2011, end: 20120305

REACTIONS (5)
  - Intraocular pressure increased [Recovered/Resolved]
  - Blindness unilateral [Not Recovered/Not Resolved]
  - Macular oedema [Unknown]
  - Eye pruritus [Unknown]
  - Amaurosis fugax [Not Recovered/Not Resolved]

NARRATIVE: CASE EVENT DATE: 20120228
